FAERS Safety Report 9670157 (Version 2)
Quarter: 2013Q4

REPORT INFORMATION
  Report Type: Report from Study
  Country: US (occurrence: US)
  Receive Date: 20131105
  Receipt Date: 20131119
  Transmission Date: 20140711
  Serious: Yes (Death, Hospitalization, Other)
  Sender: FDA-Public Use
  Company Number: US-PFIZER INC-2013314491

PATIENT
  Sex: 0

DRUGS (3)
  1. IBUPROFEN [Suspect]
     Indication: PATENT DUCTUS ARTERIOSUS
     Dosage: 5 MG/KG, PER 24 HOURS
     Route: 065
  2. IBUPROFEN [Suspect]
     Dosage: 10 MG/KG
     Route: 065
  3. IBUPROFEN [Suspect]
     Dosage: 5 MG/KG, UNK (AT 48 HOURS)
     Route: 065

REACTIONS (10)
  - Off label use [Fatal]
  - Death [Fatal]
  - Necrotising colitis [Unknown]
  - Intestinal perforation [Unknown]
  - Infection [Unknown]
  - Haemorrhage intracranial [Unknown]
  - Periventricular leukomalacia [Unknown]
  - Hydrocephalus [Unknown]
  - Bronchopulmonary dysplasia [Unknown]
  - Retinopathy [Unknown]
